FAERS Safety Report 8844150 (Version 2)
Quarter: 2013Q2

REPORT INFORMATION
  Report Type: Spontaneous
  Country: DE (occurrence: DE)
  Receive Date: 20121017
  Receipt Date: 20130611
  Transmission Date: 20140414
  Serious: Yes (Other)
  Sender: FDA-Public Use
  Company Number: DE-US-EMD SERONO, INC.-7167129

PATIENT
  Age: 29 Year
  Sex: Female

DRUGS (2)
  1. REBIF [Suspect]
     Indication: MULTIPLE SCLEROSIS
     Route: 058
     Dates: start: 20120214, end: 201208
  2. REBIF [Suspect]
     Route: 058

REACTIONS (11)
  - Multiple fractures [Unknown]
  - Progressive multiple sclerosis [Not Recovered/Not Resolved]
  - Central nervous system lesion [Unknown]
  - Limb injury [Unknown]
  - Ulnar nerve palsy [Unknown]
  - Motor dysfunction [Unknown]
  - Gastric ulcer [Not Recovered/Not Resolved]
  - Weight decreased [Not Recovered/Not Resolved]
  - Nausea [Not Recovered/Not Resolved]
  - Vomiting [Not Recovered/Not Resolved]
  - Headache [Unknown]
